FAERS Safety Report 6902873-7 (Version None)
Quarter: 2010Q3

REPORT INFORMATION
  Report Type: 
  Country: None (occurrence: None)
  Receive Date: 20100803
  Receipt Date: 20080623
  Transmission Date: 20110219
  Serious: Yes (Other)
  Sender: FDA-Public Use
  Company Number: US-PFIZER INC-2008052931

PATIENT
  Sex: Male
  Weight: 74.8 kg

DRUGS (5)
  1. LYRICA [Suspect]
     Indication: FIBROMYALGIA
     Dates: start: 20080101
  2. PREDNISONE [Concomitant]
  3. ALTACE [Concomitant]
  4. MORPHINE SULFATE [Concomitant]
  5. ANDROGEL [Concomitant]

REACTIONS (1)
  - SUICIDAL IDEATION [None]
